FAERS Safety Report 15608652 (Version 3)
Quarter: 2018Q4

REPORT INFORMATION
  Report Type: Spontaneous
  Country: US (occurrence: US)
  Receive Date: 20181112
  Receipt Date: 20181206
  Transmission Date: 20190205
  Serious: Yes (Hospitalization)
  Sender: FDA-Public Use
  Company Number: US-ELI_LILLY_AND_COMPANY-US201811001568

PATIENT
  Age: 62 Year
  Sex: Female

DRUGS (4)
  1. METFORMIN [Suspect]
     Active Substance: METFORMIN HYDROCHLORIDE
     Indication: PRODUCT USED FOR UNKNOWN INDICATION
     Dosage: UNK, UNKNOWN
     Route: 065
  2. HUMALOG MIX75/25 [Suspect]
     Active Substance: INSULIN LISPRO
     Indication: PRODUCT USED FOR UNKNOWN INDICATION
     Dosage: 15-20 U, UNKNOWN
     Route: 058
     Dates: start: 2015
  3. HUMALOG MIX75/25 [Suspect]
     Active Substance: INSULIN LISPRO
     Dosage: 15-20 U, UNKNOWN
     Route: 058
  4. HUMALOG MIX75/25 [Suspect]
     Active Substance: INSULIN LISPRO
     Dosage: 15-20 U, UNKNOWN
     Route: 058

REACTIONS (11)
  - Hypoaesthesia [Unknown]
  - Peripheral coldness [Unknown]
  - Feeling hot [Unknown]
  - Poor peripheral circulation [Unknown]
  - Wrong technique in product usage process [Unknown]
  - Paraesthesia [Unknown]
  - Diarrhoea [Unknown]
  - Cerebrovascular accident [Unknown]
  - Limb discomfort [Unknown]
  - Visual impairment [Unknown]
  - Malaise [Unknown]

NARRATIVE: CASE EVENT DATE: 2015
